FAERS Safety Report 6634568-1 (Version None)
Quarter: 2010Q1

REPORT INFORMATION
  Report Type: 
  Country: None (occurrence: None)
  Receive Date: 20100225
  Receipt Date: 20090117
  Transmission Date: 20100710
  Serious: Yes (Other)
  Sender: FDA-Public Use
  Company Number: 594872

PATIENT
  Age: 16 Year
  Sex: Male
  Weight: 58 kg

DRUGS (1)
  1. ACCUTANE [Suspect]
     Indication: ACNE
     Dosage: 40 MG 1 PER DAY ORAL
     Route: 048
     Dates: start: 20080719, end: 20081004

REACTIONS (3)
  - DECREASED APPETITE [None]
  - DEPRESSION [None]
  - WEIGHT DECREASED [None]
